FAERS Safety Report 25045764 (Version 1)
Quarter: 2025Q1

REPORT INFORMATION
  Report Type: Report from Study
  Country: US (occurrence: US)
  Receive Date: 20250306
  Receipt Date: 20250306
  Transmission Date: 20250409
  Serious: Yes (Other)
  Sender: ABBVIE
  Company Number: US-ABBVIE-6158217

PATIENT
  Age: 74 Year
  Sex: Female

DRUGS (1)
  1. HUMIRA [Suspect]
     Active Substance: ADALIMUMAB
     Indication: Psoriatic arthropathy
     Route: 058
     Dates: start: 20180619

REACTIONS (8)
  - Bone neoplasm [Not Recovered/Not Resolved]
  - Musculoskeletal chest pain [Unknown]
  - Plasma cell myeloma [Not Recovered/Not Resolved]
  - Mass [Unknown]
  - Gait inability [Unknown]
  - Pain in extremity [Not Recovered/Not Resolved]
  - Hypoaesthesia [Unknown]
  - Spinal pain [Unknown]

NARRATIVE: CASE EVENT DATE: 20241101
